FAERS Safety Report 19845090 (Version 7)
Quarter: 2021Q4

REPORT INFORMATION
  Report Type: Spontaneous
  Country: US (occurrence: US)
  Receive Date: 20210916
  Receipt Date: 20211203
  Transmission Date: 20220303
  Serious: Yes (Other)
  Sender: FDA-Public Use
  Company Number: US-ORGANON-O2109USA001222

PATIENT
  Age: 25 Year
  Sex: Female
  Weight: 176 kg

DRUGS (1)
  1. NEXPLANON [Suspect]
     Active Substance: ETONOGESTREL
     Dosage: 1 IMPLANT EVERY THREE YEARS
     Route: 059
     Dates: start: 201909

REACTIONS (5)
  - Pregnancy with implant contraceptive [Recovered/Resolved]
  - Premature delivery [Unknown]
  - Unintended pregnancy [Recovered/Resolved]
  - Complication associated with device [Unknown]
  - Product dose omission issue [Unknown]

NARRATIVE: CASE EVENT DATE: 20210209
